FAERS Safety Report 4572068-3 (Version None)
Quarter: 2005Q1

REPORT INFORMATION
  Report Type: 
  Country: None (occurrence: None)
  Receive Date: 20050202
  Receipt Date: 20050112
  Transmission Date: 20050727
  Serious: Yes (Other)
  Sender: FDA-Public Use
  Company Number: USA040772435

PATIENT
  Age: 76 Year
  Sex: Female
  Weight: 52 kg

DRUGS (1)
  1. FORTEO [Suspect]
     Indication: OSTEOPOROSIS
     Dosage: 20 UG/1 DAY
     Dates: start: 20040624

REACTIONS (16)
  - AMNESIA [None]
  - ARTHRALGIA [None]
  - CONTUSION [None]
  - DEVICE MALFUNCTION [None]
  - DIFFICULTY IN WALKING [None]
  - DIZZINESS [None]
  - FALL [None]
  - GAIT DISTURBANCE [None]
  - JOINT SPRAIN [None]
  - OEDEMA PERIPHERAL [None]
  - PAIN [None]
  - PAIN IN EXTREMITY [None]
  - SKELETAL INJURY [None]
  - TREATMENT NONCOMPLIANCE [None]
  - VITAMIN B12 DEFICIENCY [None]
  - WEIGHT INCREASED [None]
